FAERS Safety Report 20434569 (Version 1)
Quarter: 2022Q1

REPORT INFORMATION
  Report Type: Report from Study
  Country: US (occurrence: US)
  Receive Date: 20220206
  Receipt Date: 20220206
  Transmission Date: 20220423
  Serious: Yes (Disabling, Other)
  Sender: FDA-Public Use
  Company Number: US-NOVARTISPH-NVSC2022US020440

PATIENT
  Sex: Female

DRUGS (1)
  1. MYFORTIC [Suspect]
     Active Substance: MYCOPHENOLATE SODIUM
     Indication: Uveitis
     Dosage: UNK
     Route: 065

REACTIONS (5)
  - Eye disorder [Unknown]
  - Blindness [Unknown]
  - Immunosuppression [Unknown]
  - Illness [Unknown]
  - Product use in unapproved indication [Unknown]
